FAERS Safety Report 10586355 (Version 1)
Quarter: 2014Q4

REPORT INFORMATION
  Report Type: Spontaneous
  Country: PL (occurrence: PL)
  Receive Date: 20141117
  Receipt Date: 20141117
  Transmission Date: 20150529
  Serious: Yes (Hospitalization)
  Sender: FDA-Public Use
  Company Number: PL-AMGEN-POLSP2014088197

PATIENT
  Age: 57 Year
  Sex: Female
  Weight: 70 kg

DRUGS (4)
  1. VECTIBIX [Suspect]
     Active Substance: PANITUMUMAB
     Indication: COLON CANCER
     Dosage: 438 MG, EVERY 14 DAYS
     Route: 042
     Dates: start: 20141020
  2. OXALIPLATIN. [Concomitant]
     Active Substance: OXALIPLATIN
     Indication: COLON CANCER
     Dosage: UNK UNK, EVERY 14 DAYS
     Route: 042
     Dates: start: 20140912
  3. FOLINIC ACID [Concomitant]
     Active Substance: LEUCOVORIN
     Indication: COLON CANCER
     Dosage: UNK UNK, EVERY 14 DAYS
     Route: 042
     Dates: start: 20140912
  4. 5-FU                               /00098801/ [Concomitant]
     Active Substance: FLUOROURACIL
     Indication: COLON CANCER
     Dosage: UNK UNK, EVERY 14 DAYS
     Route: 042
     Dates: start: 20140912

REACTIONS (1)
  - Subileus [Recovering/Resolving]

NARRATIVE: CASE EVENT DATE: 20141102
